FAERS Safety Report 19190589 (Version 12)
Quarter: 2025Q3

REPORT INFORMATION
  Report Type: Spontaneous
  Country: US (occurrence: US)
  Receive Date: 20210428
  Receipt Date: 20250807
  Transmission Date: 20251021
  Serious: Yes (Other)
  Sender: PFIZER
  Company Number: US-PFIZER INC-2021437971

PATIENT
  Age: 67 Year
  Sex: Female
  Weight: 63.5 kg

DRUGS (2)
  1. ESTRING [Suspect]
     Active Substance: ESTRADIOL
     Indication: Vulvovaginal dryness
     Dosage: UNK, EVERY 3 MONTHS(INSERT ONE ESTRING PER VAGINA EVERY 90 DAYS)
     Route: 067
     Dates: start: 2020
  2. PILOCARPINE [Concomitant]
     Active Substance: PILOCARPINE
     Route: 048
     Dates: start: 2020

REACTIONS (2)
  - Autoimmune hepatitis [Not Recovered/Not Resolved]
  - Dysphonia [Not Recovered/Not Resolved]
